FAERS Safety Report 10891917 (Version 1)
Quarter: 2015Q1

REPORT INFORMATION
  Report Type: Spontaneous
  Country: JP (occurrence: JP)
  Receive Date: 20150306
  Receipt Date: 20150306
  Transmission Date: 20150721
  Serious: Yes (Hospitalization)
  Sender: FDA-Public Use
  Company Number: JP-009507513-1503JPN001892

PATIENT
  Age: 53 Year
  Sex: Male
  Weight: 74 kg

DRUGS (11)
  1. NEXIUM [Concomitant]
     Active Substance: ESOMEPRAZOLE MAGNESIUM
     Route: 048
  2. PROGRAF [Concomitant]
     Active Substance: TACROLIMUS\TACROLIMUS ANHYDROUS
     Route: 048
  3. NEUQUINON [Concomitant]
     Active Substance: UBIDECARENONE
     Route: 048
  4. TRYPTANOL [Suspect]
     Active Substance: AMITRIPTYLINE
     Indication: PAIN
     Dosage: 20 MG, QD; STRENGTH REPORTED AS 10 (UNITS NOT PROVIDED)
     Route: 048
     Dates: start: 20140924, end: 20140929
  5. URSO [Concomitant]
     Active Substance: URSODIOL
     Route: 048
  6. ITRIZOLE [Concomitant]
     Active Substance: ITRACONAZOLE
     Route: 048
  7. LOXOPROFEN SODIUM [Suspect]
     Active Substance: LOXOPROFEN SODIUM
     Dosage: UNK
     Route: 048
     Dates: start: 20140922, end: 20140929
  8. BAKTAR [Suspect]
     Active Substance: SULFAMETHOXAZOLE\TRIMETHOPRIM
     Dosage: 1 DF, 1/1 DAY
     Route: 048
     Dates: start: 20140531
  9. BIO-THREE [Concomitant]
     Active Substance: HERBALS
     Route: 048
  10. FAMVIR [Suspect]
     Active Substance: FAMCICLOVIR
     Dosage: 500 MG, 3/1 DAY
     Route: 048
     Dates: start: 20140924
  11. ACYCLOVIR. [Concomitant]
     Active Substance: ACYCLOVIR
     Indication: HERPES ZOSTER
     Dosage: 250 MG, UNK
     Route: 041
     Dates: start: 20140917, end: 20140923

REACTIONS (1)
  - Stevens-Johnson syndrome [Recovered/Resolved]

NARRATIVE: CASE EVENT DATE: 20140925
